FAERS Safety Report 25735547 (Version 1)
Quarter: 2025Q3

REPORT INFORMATION
  Report Type: Spontaneous
  Country: US (occurrence: US)
  Receive Date: 20250828
  Receipt Date: 20250828
  Transmission Date: 20251021
  Serious: No
  Sender: MYLAN
  Company Number: US-MYLANLABS-2025M1070279

PATIENT
  Age: 8 Year
  Sex: Male
  Weight: 28.5 kg

DRUGS (8)
  1. PREDNISONE [Suspect]
     Active Substance: PREDNISONE
     Indication: Duchenne muscular dystrophy
     Dosage: 2.5 MILLIGRAM, QD (ONCE DIALY)
     Dates: start: 20250512
  2. ELEVIDYS [Suspect]
     Active Substance: DELANDISTROGENE MOXEPARVOVEC-ROKL
     Indication: Duchenne muscular dystrophy
     Dates: start: 20250512, end: 20250512
  3. AGAMREE [Concomitant]
     Active Substance: VAMOROLONE
     Indication: Duchenne muscular dystrophy
  4. AMICAR [Concomitant]
     Active Substance: AMINOCAPROIC ACID
     Indication: Gingival bleeding
  5. LISINOPRIL [Concomitant]
     Active Substance: LISINOPRIL
     Indication: Heart failure with reduced ejection fraction
  6. ALDACTONE [Concomitant]
     Active Substance: SPIRONOLACTONE
     Indication: Heart failure with reduced ejection fraction
  7. VITAMIN D3 [Concomitant]
     Active Substance: CHOLECALCIFEROL
     Indication: Vitamin D deficiency
  8. VITAMIN D3 [Concomitant]
     Active Substance: CHOLECALCIFEROL
     Indication: Bone disorder

REACTIONS (4)
  - Anger [Recovered/Resolved]
  - Ear infection [Not Recovered/Not Resolved]
  - Irritability [Recovered/Resolved]
  - Off label use [Unknown]

NARRATIVE: CASE EVENT DATE: 20250501
